FAERS Safety Report 6260201-7 (Version None)
Quarter: 2009Q3

REPORT INFORMATION
  Report Type: 
  Country: None (occurrence: None)
  Receive Date: 20090708
  Receipt Date: 20090629
  Transmission Date: 20100115
  Serious: Yes (Hospitalization)
  Sender: FDA-Public Use
  Company Number: B0581102A

PATIENT
  Sex: Male

DRUGS (5)
  1. DEROXAT [Suspect]
     Indication: SUICIDE ATTEMPT
     Dosage: 28TAB SINGLE DOSE
     Route: 048
     Dates: start: 20090306, end: 20090306
  2. LEXOMIL [Suspect]
     Indication: SUICIDE ATTEMPT
     Dosage: 30TAB SINGLE DOSE
     Route: 048
     Dates: start: 20090306, end: 20090306
  3. NOCTRAN [Suspect]
     Indication: SUICIDE ATTEMPT
     Dosage: 30TAB SINGLE DOSE
     Route: 048
     Dates: start: 20090306, end: 20090306
  4. ALPRAZOLAM [Suspect]
     Indication: SUICIDE ATTEMPT
     Dosage: 20TAB SINGLE DOSE
     Route: 048
     Dates: start: 20090306, end: 20090306
  5. SIMVASTATIN [Concomitant]
     Route: 065

REACTIONS (8)
  - CIRCULATORY COLLAPSE [None]
  - COMA [None]
  - DEPRESSED LEVEL OF CONSCIOUSNESS [None]
  - GENERAL PHYSICAL HEALTH DETERIORATION [None]
  - LUNG DISORDER [None]
  - MIOSIS [None]
  - MULTIPLE DRUG OVERDOSE INTENTIONAL [None]
  - SUICIDE ATTEMPT [None]
